FAERS Safety Report 14925775 (Version 1)
Quarter: 2018Q2

REPORT INFORMATION
  Report Type: Spontaneous
  Country: NO (occurrence: NO)
  Receive Date: 20180522
  Receipt Date: 20180522
  Transmission Date: 20180711
  Serious: Yes (Life-Threatening)
  Sender: FDA-Public Use
  Company Number: NO-009507513-1805NOR007261

PATIENT
  Age: 48 Year
  Sex: Female

DRUGS (6)
  1. EPINEPHRINE. [Concomitant]
     Active Substance: EPINEPHRINE
     Route: 042
     Dates: start: 20180410, end: 20180410
  2. REMIFENTANIL HYDROCHLORIDE. [Concomitant]
     Active Substance: REMIFENTANIL HYDROCHLORIDE
     Route: 042
     Dates: start: 20180410, end: 20180410
  3. FLAGYL [Concomitant]
     Active Substance: METRONIDAZOLE\METRONIDAZOLE HYDROCHLORIDE
     Dosage: 1.5 G, UNK
     Route: 042
     Dates: start: 20180410, end: 20180410
  4. ESMERON [Suspect]
     Active Substance: ROCURONIUM BROMIDE
     Indication: MUSCLE RELAXANT THERAPY
     Dosage: 50 MG, UNK (STRENGTH: 10 MG/ML)
     Route: 042
     Dates: start: 20180410, end: 20180410
  5. MARCAIN [Concomitant]
     Active Substance: BUPIVACAINE HYDROCHLORIDE
     Route: 008
     Dates: start: 20180410, end: 20180410
  6. PROPOFOL. [Concomitant]
     Active Substance: PROPOFOL
     Dates: start: 20180410, end: 20180410

REACTIONS (5)
  - Erythema [Recovered/Resolved]
  - Acute pulmonary oedema [Recovered/Resolved]
  - Angioedema [Recovered/Resolved]
  - Muscle spasms [Recovered/Resolved]
  - Bronchospasm [Recovered/Resolved]

NARRATIVE: CASE EVENT DATE: 20180410
